FAERS Safety Report 8991385 (Version 1)
Quarter: 2012Q4

REPORT INFORMATION
  Report Type: 
  Country: US (occurrence: US)
  Receive Date: 20121229
  Receipt Date: 20121229
  Transmission Date: 20130627
  Serious: No
  Sender: FDA-Public Use
  Company Number: US-B.I. PHARMACEUTICALS,INC./RIDGEFIELD-2012-BI-03625PF

PATIENT
  Sex: Female

DRUGS (2)
  1. SPIRIVA [Suspect]
  2. SEREVENT [Suspect]

REACTIONS (2)
  - Paraesthesia [Not Recovered/Not Resolved]
  - Burning sensation [Not Recovered/Not Resolved]
